FAERS Safety Report 14409186 (Version 1)
Quarter: 2018Q1

REPORT INFORMATION
  Report Type: Report from Study
  Country: US (occurrence: US)
  Receive Date: 20180119
  Receipt Date: 20180119
  Transmission Date: 20180509
  Serious: Yes (Other)
  Sender: FDA-Public Use
  Company Number: US-BIOGEN-2018BI00512851

PATIENT
  Sex: Female

DRUGS (1)
  1. TECFIDERA [Suspect]
     Active Substance: DIMETHYL FUMARATE
     Indication: MULTIPLE SCLEROSIS
     Dosage: TAKE ONE 120 MG CAPSULE TWICE A DAY FOR 7 DAYS, THEN TAKE ONE 240 MG CAPSULE TWICE A DAY FOR 23 DAYS
     Route: 048
     Dates: start: 20180117

REACTIONS (1)
  - Diabetes mellitus [Unknown]
